FAERS Safety Report 24043014 (Version 2)
Quarter: 2024Q3

REPORT INFORMATION
  Report Type: Report from Study
  Country: EG (occurrence: EG)
  Receive Date: 20240702
  Receipt Date: 20240823
  Transmission Date: 20241017
  Serious: Yes (Death, Hospitalization, Other)
  Sender: TAIHO ONCOLOGY INC
  Company Number: EG-SERVIER-S24007228

PATIENT
  Age: 59 Year
  Sex: Female
  Weight: 57 kg

DRUGS (1)
  1. LONSURF [Suspect]
     Active Substance: TIPIRACIL HYDROCHLORIDE\TRIFLURIDINE
     Indication: Colorectal cancer metastatic
     Dosage: 60 MG, ON DAYS 1-5 AND 8-12 OF EACH 28-DAY CYCLE
     Route: 048
     Dates: start: 20240516, end: 20240520

REACTIONS (6)
  - Death [Fatal]
  - Anaemia [Recovering/Resolving]
  - Hypotension [Recovering/Resolving]
  - Oedema peripheral [Recovering/Resolving]
  - Malnutrition [Recovering/Resolving]
  - Ascites [Unknown]

NARRATIVE: CASE EVENT DATE: 20240607
